FAERS Safety Report 15005719 (Version 1)
Quarter: 2018Q2

REPORT INFORMATION
  Report Type: Spontaneous
  Country: US (occurrence: US)
  Receive Date: 20180521
  Receipt Date: 20180521
  Transmission Date: 20180711
  Serious: Yes (Hospitalization)
  Sender: FDA-Public Use
  Company Number: None

PATIENT
  Age: 63 Year
  Sex: Male
  Weight: 101.4 kg

DRUGS (12)
  1. BC (ASPIRIN\CAFFEINE) [Suspect]
     Active Substance: ASPIRIN\CAFFEINE
  2. LASIX [Concomitant]
     Active Substance: FUROSEMIDE
  3. SPIRONOLACTONE. [Suspect]
     Active Substance: SPIRONOLACTONE
  4. ELIQUIS [Concomitant]
     Active Substance: APIXABAN
  5. CORLANOR [Concomitant]
     Active Substance: IVABRADINE HYDROCHLORIDE
  6. RAMPRIL 10MG PO BID [Suspect]
     Active Substance: RAMIPRIL
     Indication: HYPERTENSION
     Dosage: CHRONIC   DATES OF USE
     Route: 048
  7. KCL [Suspect]
     Active Substance: POTASSIUM CHLORIDE
     Indication: HYPERTENSION
     Dosage: CHRONIC   DATES OF USE
     Route: 048
  8. ZYLOPRIM [Concomitant]
     Active Substance: ALLOPURINOL
  9. COREG [Concomitant]
     Active Substance: CARVEDILOL
  10. CENTRUM SILVER [Concomitant]
     Active Substance: MINERALS\VITAMINS
  11. APRESOLINE HYDROCHLORIDE [Concomitant]
     Active Substance: HYDRALAZINE HYDROCHLORIDE
  12. FE [Concomitant]
     Active Substance: IRON

REACTIONS (4)
  - Acute kidney injury [None]
  - Hyperkalaemia [None]
  - Hypophagia [None]
  - Hypoglycaemia [None]

NARRATIVE: CASE EVENT DATE: 20180123
